FAERS Safety Report 20448151 (Version 1)
Quarter: 2022Q1

REPORT INFORMATION
  Report Type: Spontaneous
  Country: CA (occurrence: CA)
  Receive Date: 20220209
  Receipt Date: 20220209
  Transmission Date: 20220424
  Serious: Yes (Hospitalization)
  Sender: FDA-Public Use
  Company Number: CA-TEVA-2022-CA-2004385

PATIENT
  Age: 15 Year
  Sex: Male
  Weight: 43 kg

DRUGS (14)
  1. CEFADROXIL [Suspect]
     Active Substance: CEFADROXIL
     Indication: Cellulitis
     Dosage: 2000 MILLIGRAM DAILY;
     Route: 048
  2. BACITRACIN USP [Concomitant]
  3. BETAMETHASONE [Concomitant]
     Active Substance: BETAMETHASONE
  4. DIETARY SUPPLEMENT [Concomitant]
     Active Substance: DIETARY SUPPLEMENT
  5. CONCERTA [Concomitant]
     Active Substance: METHYLPHENIDATE HYDROCHLORIDE
  6. FOLIC ACID [Concomitant]
     Active Substance: FOLIC ACID
  7. INDOMETHACIN [Concomitant]
     Active Substance: INDOMETHACIN
  8. LANSOPRAZOLE [Concomitant]
     Active Substance: LANSOPRAZOLE
  9. MELATONIN [Concomitant]
     Active Substance: MELATONIN
  10. MESTINON [Concomitant]
     Active Substance: PYRIDOSTIGMINE BROMIDE
  11. METHOTREXATE [Concomitant]
     Active Substance: METHOTREXATE
  12. PERIACTIN [Concomitant]
     Active Substance: CYPROHEPTADINE HYDROCHLORIDE
  13. SEROQUEL [Concomitant]
     Active Substance: QUETIAPINE FUMARATE
  14. VITAMIN D [Concomitant]
     Active Substance: VITAMIN D NOS

REACTIONS (1)
  - Clostridium difficile colitis [Recovering/Resolving]
